FAERS Safety Report 7774056-2 (Version None)
Quarter: 2011Q3

REPORT INFORMATION
  Report Type: 
  Country: None (occurrence: None)
  Receive Date: 20110923
  Receipt Date: 20110920
  Transmission Date: 20111222
  Serious: No
  Sender: FDA-Public Use
  Company Number: US-PFIZER INC-2011224775

PATIENT
  Sex: Female
  Weight: 83.9 kg

DRUGS (7)
  1. CHANTIX [Suspect]
     Indication: SMOKING CESSATION THERAPY
     Dosage: 0.5 MG DAILY
     Route: 048
     Dates: start: 20110901, end: 20110901
  2. ALLEGRA D 24 HOUR [Suspect]
     Dosage: UNK
     Route: 048
  3. EFFEXOR [Concomitant]
     Dosage: 150 MG, 2X/DAY
     Route: 048
  4. CHANTIX [Suspect]
     Dosage: 0.5 MG, UNK
     Route: 048
     Dates: start: 20110901
  5. GEMFIBROZIL [Concomitant]
     Dosage: 600 MG, DAILY
     Route: 048
  6. LISINOPRIL AND HYDROCHLOROTHIAZIDE [Concomitant]
     Indication: HYPERTENSION
     Dosage: 10MG/12.5 MG, DAILY
     Route: 048
  7. METFORMIN [Concomitant]
     Dosage: 500 MG, DAILY
     Route: 048

REACTIONS (2)
  - NAUSEA [None]
  - PYREXIA [None]
